FAERS Safety Report 21846692 (Version 1)
Quarter: 2023Q1

REPORT INFORMATION
  Report Type: Spontaneous
  Country: US (occurrence: US)
  Receive Date: 20230111
  Receipt Date: 20230111
  Transmission Date: 20230418
  Serious: No
  Sender: FDA-Public Use
  Company Number: US-APOTEX-2022AP014663

PATIENT
  Sex: Female
  Weight: 72.12 kg

DRUGS (4)
  1. PAXIL [Suspect]
     Active Substance: PAROXETINE HYDROCHLORIDE
     Indication: Anxiety
     Dosage: 20 MILLIGRAM
     Route: 065
  2. PAXIL [Suspect]
     Active Substance: PAROXETINE HYDROCHLORIDE
     Indication: Panic attack
     Dosage: 10 MILLIGRAM
     Route: 065
  3. PAXIL [Suspect]
     Active Substance: PAROXETINE HYDROCHLORIDE
     Dosage: 5 MILLIGRAM
     Route: 065
     Dates: start: 2022
  4. TOPRAL [SULTOPRIDE] [Concomitant]
     Indication: Palpitations
     Dosage: 12.5 MILLIGRAM, Q.O.D.
     Route: 065

REACTIONS (5)
  - Illness [Recovered/Resolved]
  - Treatment noncompliance [Unknown]
  - Feeling abnormal [Recovered/Resolved]
  - Malaise [Recovered/Resolved]
  - Withdrawal syndrome [Recovered/Resolved]
